FAERS Safety Report 7068359-7 (Version None)
Quarter: 2010Q4

REPORT INFORMATION
  Report Type: 
  Country: None (occurrence: None)
  Receive Date: 20101028
  Receipt Date: 20101021
  Transmission Date: 20110411
  Serious: Yes (Other)
  Sender: FDA-Public Use
  Company Number: A0888777A

PATIENT
  Sex: Female

DRUGS (2)
  1. AVANDIA [Suspect]
     Dosage: 4MG PER DAY
     Route: 048
     Dates: start: 20021001
  2. AVANDAMET [Suspect]
     Route: 048
     Dates: start: 20041201, end: 20070201

REACTIONS (1)
  - MYOCARDIAL INFARCTION [None]
